FAERS Safety Report 5936834-1 (Version None)
Quarter: 2008Q4

REPORT INFORMATION
  Report Type: 
  Country: None (occurrence: None)
  Receive Date: 20081029
  Receipt Date: 20081016
  Transmission Date: 20090506
  Serious: Yes (Other)
  Sender: FDA-Public Use
  Company Number: 2008-185502-NL

PATIENT
  Age: 32 Year
  Sex: Female
  Weight: 91.2 kg

DRUGS (1)
  1. IMPLANON [Suspect]
     Indication: CONTRACEPTION
     Dosage: NI SUBDERMAL, UNKNOWN
     Route: 059
     Dates: start: 20061116

REACTIONS (6)
  - BREAST TENDERNESS [None]
  - HYPERTENSION [None]
  - MENSTRUATION IRREGULAR [None]
  - NAUSEA [None]
  - RHEUMATOID ARTHRITIS [None]
  - SYSTEMIC LUPUS ERYTHEMATOSUS [None]
